FAERS Safety Report 9905889 (Version 3)
Quarter: 2014Q2

REPORT INFORMATION
  Report Type: Spontaneous
  Country: DE (occurrence: DE)
  Receive Date: 20140218
  Receipt Date: 20140516
  Transmission Date: 20141212
  Serious: Yes (Disabling, Other)
  Sender: FDA-Public Use
  Company Number: DE-TEVA-368516GER

PATIENT
  Sex: 0

DRUGS (1)
  1. COPAXONE [Suspect]
     Indication: MULTIPLE SCLEROSIS
     Dates: start: 20060518

REACTIONS (8)
  - Blindness unilateral [Not Recovered/Not Resolved]
  - Optic neuritis [Unknown]
  - Optic atrophy [Not Recovered/Not Resolved]
  - Visual field defect [Unknown]
  - Hypoaesthesia [Recovering/Resolving]
  - Paraesthesia [Recovered/Resolved]
  - Hyperaesthesia [Recovered/Resolved]
  - Facial pain [Recovered/Resolved]
